FAERS Safety Report 9921987 (Version 1)
Quarter: 2014Q1

REPORT INFORMATION
  Report Type: Spontaneous
  Country: US (occurrence: None)
  Receive Date: 20140221
  Receipt Date: 20140221
  Transmission Date: 20141002
  Serious: No
  Sender: FDA-Public Use
  Company Number: None

PATIENT
  Age: 33 Year
  Sex: Female
  Weight: 66.23 kg

DRUGS (1)
  1. RISPERDAL [Suspect]
     Indication: HALLUCINATION, AUDITORY

REACTIONS (20)
  - Staphylococcal infection [None]
  - Economic problem [None]
  - Incision site complication [None]
  - Purulence [None]
  - Abasia [None]
  - Activities of daily living impaired [None]
  - Pathogen resistance [None]
  - Homicidal ideation [None]
  - Suicide attempt [None]
  - Insomnia [None]
  - Impaired work ability [None]
  - Thinking abnormal [None]
  - Tooth disorder [None]
  - Feeling cold [None]
  - Anxiety [None]
  - Feeling abnormal [None]
  - Speech disorder [None]
  - Hallucination [None]
  - Formication [None]
  - Nightmare [None]
